FAERS Safety Report 18657096 (Version 1)
Quarter: 2020Q4

REPORT INFORMATION
  Report Type: Spontaneous
  Country: RO (occurrence: RO)
  Receive Date: 20201223
  Receipt Date: 20201223
  Transmission Date: 20210114
  Serious: Yes (Other)
  Sender: FDA-Public Use
  Company Number: RO-BRISTOL-MYERS SQUIBB COMPANY-BMS-2020-109101

PATIENT
  Age: 71 Year
  Sex: Male
  Weight: 66 kg

DRUGS (15)
  1. OMEZ [Concomitant]
     Active Substance: OMEPRAZOLE
     Indication: GASTROOESOPHAGEAL REFLUX DISEASE
  2. ERDOMED [Concomitant]
     Active Substance: ERDOSTEINE
     Dosage: 2 CAPSULE PER DAY
     Route: 048
     Dates: start: 20191028, end: 20200122
  3. TEOTARD [Concomitant]
     Active Substance: THEOPHYLLINE ANHYDROUS
     Dosage: 350 MILLIGRAM, QD
     Route: 048
     Dates: start: 20190928, end: 20200122
  4. ORENCIA [Suspect]
     Active Substance: ABATACEPT
     Indication: RHEUMATOID ARTHRITIS
     Dosage: ONE VIAL OF 125 MG PER WEEK
     Route: 058
     Dates: start: 20200106, end: 20200226
  5. ORENCIA [Suspect]
     Active Substance: ABATACEPT
     Indication: RHEUMATOID ARTHRITIS
     Dosage: ONE VIAL OF 125 MG PER WEEK
     Route: 058
     Dates: start: 20200106, end: 20200226
  6. PENTOXIFILINA [Concomitant]
     Active Substance: PENTOXIFYLLINE
     Indication: RAYNAUD^S PHENOMENON
     Dosage: 400 MILLIGRAM, QD
     Route: 048
     Dates: start: 20050501
  7. TEOTARD [Concomitant]
     Active Substance: THEOPHYLLINE ANHYDROUS
     Indication: INTERSTITIAL LUNG DISEASE
     Dosage: ONE CAPSULE OF 200 MG PER DAY
     Route: 048
     Dates: start: 20200123
  8. ERDOMED [Concomitant]
     Active Substance: ERDOSTEINE
     Indication: INTERSTITIAL LUNG DISEASE
     Dosage: 300 MILLIGRAM, QD
     Route: 048
     Dates: start: 20200122
  9. ALPHA D3 [Concomitant]
     Active Substance: ALFACALCIDOL
     Indication: OSTEOPENIA
     Dosage: ONE CAPSULE OF 0.5 MCG PER DAY
     Route: 048
     Dates: start: 20110415
  10. DETRALEX [Concomitant]
     Active Substance: DIOSMIN\HESPERIDIN
     Indication: PERIPHERAL VENOUS DISEASE
     Dosage: TWO TABLETS PER DAY
     Route: 048
     Dates: start: 20170526
  11. ASPENTER [Concomitant]
     Active Substance: ASPIRIN
     Indication: HYPERTENSION
     Dosage: ONE TABLET OF 75 MG/DAY
     Route: 048
     Dates: start: 20061010
  12. OMEZ [Concomitant]
     Active Substance: OMEPRAZOLE
     Indication: PROPHYLAXIS AGAINST GASTROINTESTINAL ULCER
     Dosage: 1 TABLET OF 20 MG/DAY, WHEN NEEDED
     Route: 048
     Dates: start: 20060501
  13. VESSEL DUE F [Concomitant]
     Active Substance: SULODEXIDE
     Indication: PERIPHERAL VENOUS DISEASE
     Dosage: ONE SOFT CAPSULE TWICE A DAY
     Route: 048
     Dates: start: 20180319
  14. SPIRIVA RESPIMAT [Concomitant]
     Active Substance: TIOTROPIUM BROMIDE
     Indication: INTERSTITIAL LUNG DISEASE
     Dosage: 2.5 MICROGRAM, BID
     Route: 055
     Dates: start: 20190910
  15. NIFEDIPINUM [Concomitant]
     Indication: RAYNAUD^S PHENOMENON
     Dosage: ONE PROLONGED-RELEASE TABLET/DAY
     Route: 048
     Dates: start: 20061010

REACTIONS (1)
  - Herpes ophthalmic [Recovered/Resolved with Sequelae]

NARRATIVE: CASE EVENT DATE: 20200226
